FAERS Safety Report 5800913-X (Version None)
Quarter: 2008Q3

REPORT INFORMATION
  Report Type: 
  Country: None (occurrence: None)
  Receive Date: 20080701
  Receipt Date: 20080620
  Transmission Date: 20090109
  Serious: Yes (Death, Other)
  Sender: FDA-Public Use
  Company Number: 2008AL007652

PATIENT
  Age: 39 Year
  Sex: Female

DRUGS (8)
  1. DIAZEPAM [Suspect]
     Dates: end: 20060101
  2. PAREGORIC LIQUID USP [Suspect]
     Dosage: IV
     Route: 042
     Dates: end: 20060101
  3. ETHANOL [Concomitant]
  4. VENLFAXINE [Concomitant]
  5. OLANZAPINE [Concomitant]
  6. TRIMIPRAMINE MALEATE [Concomitant]
  7. FEVERALL (ACETAMINOPHEN RECAL SUPPOSITORIES) [Suspect]
     Dates: end: 20060101
  8. PENTAZOCINE LACTATE [Concomitant]

REACTIONS (1)
  - DRUG TOXICITY [None]
